FAERS Safety Report 4281653-8 (Version None)
Quarter: 2004Q1

REPORT INFORMATION
  Report Type: 
  Country: None (occurrence: None)
  Receive Date: 20040128
  Receipt Date: 20040113
  Transmission Date: 20041129
  Serious: Yes (Other)
  Sender: FDA-Public Use
  Company Number: 203874

PATIENT
  Sex: Male

DRUGS (3)
  1. MABTHERA(RITUXIMAB) CONC FOR MABTHERA(RITUXIMAB) CONC FOR SOLUTION FOR [Suspect]
     Indication: LYMPHOMA
     Dosage: 200 MG, Q1H, INTRAVENOUS
     Route: 042
     Dates: start: 20031216
  2. FLUDARABINE PHOSPHATE [Concomitant]
  3. CYCLOPHOSPHAMIDE [Concomitant]

REACTIONS (3)
  - CHILLS [None]
  - CYANOSIS [None]
  - DYSPNOEA [None]
